FAERS Safety Report 9192751 (Version 1)
Quarter: 2013Q1

REPORT INFORMATION
  Report Type: Spontaneous
  Country: US (occurrence: US)
  Receive Date: 20130327
  Receipt Date: 20130327
  Transmission Date: 20140127
  Serious: Yes (Other)
  Sender: FDA-Public Use
  Company Number: US-PFIZER INC-2005073784

PATIENT
  Age: 50 Year
  Sex: Female
  Weight: 54.4 kg

DRUGS (1)
  1. IBUPROFEN [Suspect]
     Dosage: 800 MG

REACTIONS (2)
  - Road traffic accident [Unknown]
  - Vomiting [Unknown]
